FAERS Safety Report 15061630 (Version 1)
Quarter: 2018Q2

REPORT INFORMATION
  Report Type: Spontaneous
  Country: US (occurrence: US)
  Receive Date: 20180625
  Receipt Date: 20180625
  Transmission Date: 20180711
  Serious: Yes (Other)
  Sender: FDA-Public Use
  Company Number: US-ASTRAZENECA-2018SE81139

PATIENT
  Sex: Female
  Weight: 43.1 kg

DRUGS (14)
  1. FOLATE SODIUM [Concomitant]
     Active Substance: FOLATE SODIUM
     Indication: FOLATE DEFICIENCY
     Route: 048
  2. AZITHROMYCIN ANHYDROUS. [Concomitant]
     Active Substance: AZITHROMYCIN ANHYDROUS
     Indication: CHRONIC OBSTRUCTIVE PULMONARY DISEASE
     Route: 048
     Dates: start: 201804
  3. MAGNESIUM [Concomitant]
     Active Substance: MAGNESIUM
     Indication: MUSCLE RELAXANT THERAPY
     Route: 048
  4. OTC ALLERGYCOMPARABLE TO ZYRTEC/ALLERGAN [Concomitant]
     Indication: MULTIPLE ALLERGIES
     Route: 048
  5. DALIRESP [Suspect]
     Active Substance: ROFLUMILAST
     Indication: CHRONIC OBSTRUCTIVE PULMONARY DISEASE
     Route: 048
     Dates: start: 20170227, end: 20180618
  6. ALBUTEROL SULFATE NEBULIZER [Concomitant]
     Active Substance: ALBUTEROL SULFATE
     Indication: CHRONIC OBSTRUCTIVE PULMONARY DISEASE
     Route: 055
     Dates: start: 20121212
  7. MULTIVITAMIN LIVE POTENCY [Concomitant]
     Indication: MALNUTRITION
     Dosage: DAILY
     Route: 048
  8. SYMBICORT [Suspect]
     Active Substance: BUDESONIDE\FORMOTEROL FUMARATE DIHYDRATE
     Indication: CHRONIC OBSTRUCTIVE PULMONARY DISEASE
     Dosage: 160/4.5 MCG TWO TIMES A DAY
     Route: 055
  9. SPIRIVA [Concomitant]
     Active Substance: TIOTROPIUM BROMIDE MONOHYDRATE
     Indication: CHRONIC OBSTRUCTIVE PULMONARY DISEASE
     Route: 048
  10. AZITHROMYCIN ANHYDROUS. [Concomitant]
     Active Substance: AZITHROMYCIN ANHYDROUS
     Indication: INFECTION
     Route: 048
     Dates: start: 201804
  11. MAGNESIUM [Concomitant]
     Active Substance: MAGNESIUM
     Indication: PROPHYLAXIS
     Route: 048
  12. VENTOLIN HFA [Concomitant]
     Active Substance: ALBUTEROL SULFATE
     Indication: CHRONIC OBSTRUCTIVE PULMONARY DISEASE
     Route: 055
     Dates: start: 20121212
  13. AZITHROMYCIN ANHYDROUS. [Concomitant]
     Active Substance: AZITHROMYCIN ANHYDROUS
     Indication: PNEUMONIA
     Route: 048
     Dates: start: 201804
  14. METOPROLOL TARTRATE. [Suspect]
     Active Substance: METOPROLOL TARTRATE
     Indication: HEART RATE INCREASED
     Route: 048
     Dates: start: 2017

REACTIONS (11)
  - Heart rate increased [Unknown]
  - Post procedural complication [Unknown]
  - Transient ischaemic attack [Unknown]
  - Weight increased [Unknown]
  - Myocardial infarction [Unknown]
  - Weight gain poor [Unknown]
  - Anxiety [Unknown]
  - Pneumonia [Unknown]
  - Erythema [Unknown]
  - Enzyme abnormality [Unknown]
  - Tremor [Unknown]
